FAERS Safety Report 8595986 (Version 3)
Quarter: 2013Q4

REPORT INFORMATION
  Report Type: Spontaneous
  Country: US (occurrence: US)
  Receive Date: 20120605
  Receipt Date: 20131129
  Transmission Date: 20140711
  Serious: Yes (Disabling)
  Sender: FDA-Public Use
  Company Number: US-ASTRAZENECA-2012SE36025

PATIENT
  Age: 59 Year
  Sex: Female

DRUGS (14)
  1. NEXIUM [Suspect]
     Indication: GASTROOESOPHAGEAL REFLUX DISEASE
     Route: 048
     Dates: start: 2006, end: 2013
  2. NEXIUM [Suspect]
     Indication: GASTROOESOPHAGEAL REFLUX DISEASE
     Route: 048
     Dates: start: 201206
  3. PRILOSEC OTC [Suspect]
     Route: 048
  4. TUMS(OVE) [Concomitant]
     Dates: start: 2006
  5. HYDROCODONE [Concomitant]
     Indication: PAIN
  6. COZAAR [Concomitant]
     Indication: HYPERTENSION
  7. CYCLOBENZAPRINE [Concomitant]
     Indication: HYPOTONIA
  8. ESZOPICLONE [Concomitant]
     Indication: HYPOTONIA
  9. ONDANSETRON [Concomitant]
     Indication: NAUSEA
  10. ONDANSETRON [Concomitant]
     Indication: VOMITING
  11. IBUPROFEN [Concomitant]
     Indication: PAIN
  12. LUNESTA [Concomitant]
     Indication: SLEEP DISORDER
  13. FERROUS FUMARATE [Concomitant]
  14. M-VIT [Concomitant]
     Route: 048

REACTIONS (13)
  - Spinal osteoarthritis [Unknown]
  - Osteoporosis [Unknown]
  - Multiple fractures [Unknown]
  - Gastrooesophageal reflux disease [Unknown]
  - Arthritis [Unknown]
  - Glaucoma [Unknown]
  - Gastrointestinal disorder [Unknown]
  - Anxiety [Unknown]
  - Liver disorder [Unknown]
  - Headache [Unknown]
  - Muscular weakness [Unknown]
  - Pruritus [Unknown]
  - Depression [Unknown]
